FAERS Safety Report 21740956 (Version 1)
Quarter: 2022Q4

REPORT INFORMATION
  Report Type: Spontaneous
  Country: US (occurrence: None)
  Receive Date: 20221216
  Receipt Date: 20221216
  Transmission Date: 20230113
  Serious: No
  Sender: FDA-Public Use
  Company Number: None

PATIENT
  Sex: Female

DRUGS (28)
  1. AMBRISENTAN [Suspect]
     Active Substance: AMBRISENTAN
     Indication: Pulmonary arterial hypertension
     Dosage: FREQUENCY : DAILY;?
     Route: 048
  2. COLACE [Concomitant]
     Active Substance: DOCUSATE SODIUM
  3. ZOFRAN [Concomitant]
     Active Substance: ONDANSETRON HYDROCHLORIDE
  4. ROPINIROLE HYDROCHLORIDE [Concomitant]
     Active Substance: ROPINIROLE HYDROCHLORIDE
  5. LIDOCAINE [Concomitant]
     Active Substance: LIDOCAINE
  6. ALBUTEROL SULFATE [Concomitant]
     Active Substance: ALBUTEROL SULFATE
  7. VITAMIN B12 [Concomitant]
     Active Substance: CYANOCOBALAMIN
  8. HYDROCODONE BITARTRATE/AC [Concomitant]
  9. HYDROMORPHONE HCL [Concomitant]
     Active Substance: HYDROMORPHONE HYDROCHLORIDE
  10. ZOLOFT [Concomitant]
     Active Substance: SERTRALINE HYDROCHLORIDE
  11. PANTOPRAZOLE SODIUM [Concomitant]
     Active Substance: PANTOPRAZOLE SODIUM
  12. MORPHINE SULFATE [Concomitant]
     Active Substance: MORPHINE SULFATE
  13. CELLCEPT [Concomitant]
     Active Substance: MYCOPHENOLATE MOFETIL
  14. ACTEMRA [Concomitant]
     Active Substance: TOCILIZUMAB
  15. LORATADINE [Concomitant]
     Active Substance: LORATADINE
  16. ALYQ [Concomitant]
     Active Substance: TADALAFIL
  17. HYDROXYZINE HYDROCHLORIDE [Concomitant]
     Active Substance: HYDROXYZINE HYDROCHLORIDE
  18. TOPAMAX [Concomitant]
     Active Substance: TOPIRAMATE
  19. ZANAFLEX [Concomitant]
     Active Substance: TIZANIDINE HYDROCHLORIDE
  20. PROAIR HFA [Concomitant]
     Active Substance: ALBUTEROL SULFATE
  21. XANAX [Concomitant]
     Active Substance: ALPRAZOLAM
  22. BIOTIN [Concomitant]
     Active Substance: BIOTIN
  23. SEROQUEL [Concomitant]
  24. SCOPOLAMINE [Concomitant]
     Active Substance: SCOPOLAMINE
  25. REQUIP [Concomitant]
     Active Substance: ROPINIROLE HYDROCHLORIDE
  26. FUROSEMIDE [Concomitant]
     Active Substance: FUROSEMIDE
  27. REMODULIN [Concomitant]
     Active Substance: TREPROSTINIL
  28. TADALAFIL [Suspect]
     Active Substance: TADALAFIL

REACTIONS (3)
  - Dysphagia [None]
  - Treatment noncompliance [None]
  - Condition aggravated [None]
